FAERS Safety Report 14841380 (Version 3)
Quarter: 2019Q4

REPORT INFORMATION
  Report Type: Spontaneous
  Country: US (occurrence: US)
  Receive Date: 20180503
  Receipt Date: 20191011
  Transmission Date: 20200122
  Serious: Yes (Other)
  Sender: FDA-Public Use
  Company Number: US-ELI_LILLY_AND_COMPANY-US201804013892

PATIENT
  Sex: Male

DRUGS (11)
  1. VIAGRA [Suspect]
     Active Substance: SILDENAFIL CITRATE
     Indication: ERECTILE DYSFUNCTION
     Dosage: UNK, 2/M
     Route: 065
     Dates: start: 20020820, end: 2016
  2. LEVITRA [Concomitant]
     Active Substance: VARDENAFIL HYDROCHLORIDE
     Indication: ERECTILE DYSFUNCTION
  3. MOBIC [Concomitant]
     Active Substance: MELOXICAM
     Indication: ARTHRALGIA
     Dosage: UNK
  4. ALFUZOSIN [Concomitant]
     Active Substance: ALFUZOSIN
     Indication: MUSCLE RELAXANT THERAPY
     Dosage: UNK
  5. VIAGRA [Suspect]
     Active Substance: SILDENAFIL CITRATE
     Dosage: 100 MG, PRN
     Route: 065
     Dates: start: 20130320, end: 20160506
  6. CIALIS [Suspect]
     Active Substance: TADALAFIL
     Indication: ERECTILE DYSFUNCTION
     Dosage: UNK, WEEKLY (1/W)
     Route: 065
     Dates: start: 20020820, end: 2016
  7. AMLODIPINE [Concomitant]
     Active Substance: AMLODIPINE BESYLATE
     Indication: HYPERTENSION
     Dosage: UNK
  8. POTASSIUM CHLORIDE. [Concomitant]
     Active Substance: POTASSIUM CHLORIDE
     Indication: CALCIUM METABOLISM DISORDER
     Dosage: UNK
  9. FUROSEMIDE. [Concomitant]
     Active Substance: FUROSEMIDE
     Indication: HYPERTENSION
     Dosage: UNK
  10. CIALIS [Suspect]
     Active Substance: TADALAFIL
     Dosage: 5 MG, PRN
     Route: 065
     Dates: start: 20150815, end: 20160915
  11. ATORVASTATIN CALCIUM. [Concomitant]
     Active Substance: ATORVASTATIN CALCIUM
     Indication: BLOOD CHOLESTEROL INCREASED
     Dosage: UNK

REACTIONS (13)
  - Loss of consciousness [Unknown]
  - Hypermetropia [Unknown]
  - Hyalosis asteroid [Unknown]
  - Astigmatism [Unknown]
  - Pain [Unknown]
  - Epistaxis [Recovered/Resolved]
  - Presbyopia [Unknown]
  - Chest pain [Unknown]
  - Chorioretinal scar [Unknown]
  - Seborrhoeic keratosis [Unknown]
  - Malignant melanoma stage II [Unknown]
  - Blepharitis [Unknown]
  - Dizziness [Unknown]

NARRATIVE: CASE EVENT DATE: 20151210
